FAERS Safety Report 25006560 (Version 2)
Quarter: 2025Q1

REPORT INFORMATION
  Report Type: Spontaneous
  Country: DE (occurrence: DE)
  Receive Date: 20250225
  Receipt Date: 20250312
  Transmission Date: 20250408
  Serious: No
  Sender: UCB
  Company Number: DE-UCBSA-2025010174

PATIENT
  Age: 11 Year
  Sex: Female

DRUGS (1)
  1. FINTEPLA [Suspect]
     Active Substance: FENFLURAMINE
     Indication: Severe myoclonic epilepsy of infancy

REACTIONS (1)
  - Drug ineffective [Unknown]
